FAERS Safety Report 15021993 (Version 3)
Quarter: 2018Q4

REPORT INFORMATION
  Report Type: Spontaneous
  Country: US (occurrence: US)
  Receive Date: 20180618
  Receipt Date: 20181127
  Transmission Date: 20190204
  Serious: No
  Sender: FDA-Public Use
  Company Number: US-SA-2018SA152671

PATIENT
  Age: 60 Year
  Sex: Female

DRUGS (1)
  1. LANTUS SOLOSTAR [Suspect]
     Active Substance: INSULIN GLARGINE
     Indication: TYPE 2 DIABETES MELLITUS
     Dosage: 50 U, QD
     Route: 065

REACTIONS (2)
  - Blood glucose increased [Not Recovered/Not Resolved]
  - Device difficult to use [Unknown]
